FAERS Safety Report 10696544 (Version 1)
Quarter: 2015Q1

REPORT INFORMATION
  Report Type: Spontaneous
  Country: BR (occurrence: BR)
  Receive Date: 20150107
  Receipt Date: 20150107
  Transmission Date: 20150721
  Serious: Yes (Other)
  Sender: FDA-Public Use
  Company Number: BR-BRISTOL-MYERS SQUIBB COMPANY-BMS-2014-006440

PATIENT
  Sex: Female
  Weight: 83 kg

DRUGS (7)
  1. CLORANA [Concomitant]
     Active Substance: HYDROCHLOROTHIAZIDE
  2. DIOVAN [Concomitant]
     Active Substance: VALSARTAN
  3. GLIFAGE XR [Suspect]
     Active Substance: METFORMIN HYDROCHLORIDE
     Indication: DIABETES MELLITUS
     Dosage: 500 MG, BID
     Route: 065
  4. BUFFERIN [Concomitant]
     Active Substance: ASPIRIN
  5. ESOMEPRAZOLE [Concomitant]
     Active Substance: ESOMEPRAZOLE
     Indication: GASTRIC DISORDER
  6. SIMVASTATIN. [Concomitant]
     Active Substance: SIMVASTATIN
     Indication: GASTRIC DISORDER
  7. VENLAXINE [Concomitant]
     Indication: GASTRIC DISORDER

REACTIONS (5)
  - Arterial disorder [Unknown]
  - Insomnia [Unknown]
  - Crying [Unknown]
  - Abdominal pain upper [Unknown]
  - Angina pectoris [Unknown]

NARRATIVE: CASE EVENT DATE: 2006
